FAERS Safety Report 10025791 (Version 1)
Quarter: 2014Q1

REPORT INFORMATION
  Report Type: Spontaneous
  Country: GB (occurrence: None)
  Receive Date: 20140314
  Receipt Date: 20140314
  Transmission Date: 20141002
  Serious: Yes (Hospitalization, Other)
  Sender: FDA-Public Use
  Company Number: AUR-APL-2014-02401

PATIENT
  Age: 47 Year
  Sex: Female
  Weight: 102 kg

DRUGS (5)
  1. AMOXICILLIN [Suspect]
     Indication: BACK PAIN
     Dosage: 1500 MG (500 MG, 3 IN 1 D), ORAL
     Route: 048
     Dates: start: 20131220, end: 20131226
  2. LEVOTHYROXINE SODIUM (LEVOTHYROXINE SODIUM) [Concomitant]
  3. NITROFURANTOIN (NITROFURANTOIN) [Concomitant]
  4. PREMARIN (ESTROGENS CONJUGATED) [Concomitant]
  5. SOLIFENACIN (SOLIFENACIN) [Concomitant]

REACTIONS (2)
  - Jaundice cholestatic [None]
  - Liver function test abnormal [None]
